FAERS Safety Report 10538067 (Version 3)
Quarter: 2015Q1

REPORT INFORMATION
  Report Type: Spontaneous
  Country: IT (occurrence: IT)
  Receive Date: 20141023
  Receipt Date: 20150211
  Transmission Date: 20150720
  Serious: Yes (Other)
  Sender: FDA-Public Use
  Company Number: IT-PFIZER INC-2014291785

PATIENT
  Age: 83 Year
  Sex: Male

DRUGS (3)
  1. NORVASC [Suspect]
     Active Substance: AMLODIPINE BESYLATE
     Dosage: UNK
     Dates: start: 20140101, end: 20140914
  2. COUMADIN [Concomitant]
     Active Substance: WARFARIN SODIUM
     Indication: ATRIAL FIBRILLATION
     Dosage: UNK
  3. NAPRILENE [Suspect]
     Active Substance: ENALAPRIL MALEATE
     Dosage: UNK
     Dates: start: 20140101, end: 20140914

REACTIONS (5)
  - Hypotension [Unknown]
  - Electrocardiogram QRS complex abnormal [Unknown]
  - Syncope [Recovering/Resolving]
  - Sinus bradycardia [Unknown]
  - Atrioventricular block first degree [Unknown]

NARRATIVE: CASE EVENT DATE: 20140914
